FAERS Safety Report 12547826 (Version 1)
Quarter: 2016Q3

REPORT INFORMATION
  Report Type: Spontaneous
  Country: US (occurrence: US)
  Receive Date: 20160712
  Receipt Date: 20160712
  Transmission Date: 20161109
  Serious: No
  Sender: FDA-Public Use
  Company Number: US-ASTRAZENECA-2016SE43436

PATIENT
  Age: 17528 Day
  Sex: Female
  Weight: 90.7 kg

DRUGS (9)
  1. PROMETHAZINE [Concomitant]
     Active Substance: PROMETHAZINE\PROMETHAZINE HYDROCHLORIDE
     Indication: COUGH
     Dosage: 200MG
     Route: 048
  2. PULMICORT FLEXHALER [Suspect]
     Active Substance: BUDESONIDE
     Indication: ASTHMA
     Dosage: 360UG, TWO PUFFS,TWICE A DAY
     Route: 055
     Dates: start: 20150724
  3. LOSARTAN. [Concomitant]
     Active Substance: LOSARTAN
  4. LISINOPRIL. [Suspect]
     Active Substance: LISINOPRIL
     Indication: BLOOD PRESSURE ABNORMAL
     Route: 048
     Dates: start: 201511
  5. PULMICORT FLEXHALER [Suspect]
     Active Substance: BUDESONIDE
     Indication: BRONCHITIS
     Dosage: 360UG, TWO PUFFS,TWICE A DAY
     Route: 055
     Dates: start: 20150724
  6. PULMICORT FLEXHALER [Suspect]
     Active Substance: BUDESONIDE
     Indication: MULTIPLE ALLERGIES
     Dosage: 360UG, TWO PUFFS,TWICE A DAY
     Route: 055
     Dates: start: 20150724
  7. ALLEGRA-D [Concomitant]
     Active Substance: FEXOFENADINE\PSEUDOEPHEDRINE
     Indication: MULTIPLE ALLERGIES
     Route: 055
  8. VENTOLIN HFA [Concomitant]
     Active Substance: ALBUTEROL SULFATE
     Indication: ASTHMA
     Dosage: 1 OR 2 PUFFS EVERY 6 HOURS AS NEEDED
     Route: 055
  9. MUCINEX [Concomitant]
     Active Substance: GUAIFENESIN
     Dosage: TWICE DAILY

REACTIONS (9)
  - Asthma [Unknown]
  - Hypersensitivity [Unknown]
  - Bronchitis [Unknown]
  - Drug dose omission [Unknown]
  - Device failure [Unknown]
  - Cough [Unknown]
  - Intentional product misuse [Unknown]
  - Malaise [Unknown]
  - Off label use [Unknown]

NARRATIVE: CASE EVENT DATE: 20150724
